FAERS Safety Report 21847943 (Version 1)
Quarter: 2023Q1

REPORT INFORMATION
  Report Type: Spontaneous
  Country: US (occurrence: None)
  Receive Date: 20230110
  Receipt Date: 20230110
  Transmission Date: 20230417
  Serious: No
  Sender: FDA-Public Use
  Company Number: None

PATIENT
  Age: 80 Year
  Sex: Male

DRUGS (2)
  1. AMBRISENTAN [Suspect]
     Active Substance: AMBRISENTAN
     Indication: Pulmonary arterial hypertension
     Dosage: FREQUENCY : DAILY;?
     Route: 048
     Dates: start: 20220711
  2. Ambrisenatn [Concomitant]
     Dates: start: 20220711

REACTIONS (2)
  - Adverse drug reaction [None]
  - Therapy interrupted [None]

NARRATIVE: CASE EVENT DATE: 20230110
